FAERS Safety Report 8213782-8 (Version None)
Quarter: 2012Q1

REPORT INFORMATION
  Report Type: 
  Country: None (occurrence: None)
  Receive Date: 20120316
  Receipt Date: 20120306
  Transmission Date: 20120608
  Serious: Yes (Death)
  Sender: FDA-Public Use
  Company Number: GB-AMGEN-GBRCT2012015594

PATIENT
  Age: 64 Year
  Sex: Male
  Weight: 97.8 kg

DRUGS (17)
  1. DERMOL                             /01330701/ [Concomitant]
     Dosage: UNK
  2. CLOBETASOL PROPIONATE [Concomitant]
     Dosage: UNK
  3. SEPTRA [Concomitant]
     Dosage: UNK
  4. SIMVASTATIN [Concomitant]
     Dosage: UNK
  5. AMLODIPINE [Concomitant]
     Dosage: UNK
  6. ASPIRIN [Concomitant]
     Dosage: UNK
  7. ETANERCEPT [Suspect]
     Indication: PRODUCT USED FOR UNKNOWN INDICATION
     Dosage: 50 MG, QWK
     Dates: start: 20100930, end: 20110614
  8. LANTUS [Concomitant]
     Dosage: UNK
  9. RAMIPRIL [Concomitant]
     Dosage: UNK
  10. GLICLAZIDE [Concomitant]
     Dosage: UNK
  11. METFORMIN HCL [Concomitant]
     Dosage: UNK
  12. PERSANTIN [Concomitant]
     Dosage: UNK
  13. INSULIN [Concomitant]
     Dosage: UNK
  14. FUMARIC ACID [Concomitant]
     Dosage: UNK
  15. LEVOFLOXACIN [Concomitant]
     Dosage: UNK
  16. NOVOMIX [Concomitant]
     Dosage: UNK
  17. CLARITHROMYCIN [Concomitant]
     Dosage: UNK

REACTIONS (1)
  - SMALL CELL CARCINOMA [None]
